FAERS Safety Report 25006703 (Version 2)
Quarter: 2025Q2

REPORT INFORMATION
  Report Type: Report from Study
  Country: US (occurrence: US)
  Receive Date: 20250225
  Receipt Date: 20250502
  Transmission Date: 20250717
  Serious: Yes (Other)
  Sender: ABBVIE
  Company Number: US-ABBVIE-6142182

PATIENT
  Sex: Male

DRUGS (1)
  1. RINVOQ [Suspect]
     Active Substance: UPADACITINIB
     Indication: Product used for unknown indication
     Route: 048
     Dates: start: 20240101

REACTIONS (3)
  - Rotator cuff repair [Recovered/Resolved]
  - Neuropathy peripheral [Recovered/Resolved]
  - Dental implantation [Recovering/Resolving]
